FAERS Safety Report 5634472-1 (Version None)
Quarter: 2008Q1

REPORT INFORMATION
  Report Type: 
  Country: None (occurrence: None)
  Receive Date: 20080220
  Receipt Date: 20080220
  Transmission Date: 20080703
  Serious: Yes (Hospitalization)
  Sender: FDA-Public Use
  Company Number: None

PATIENT
  Age: 86 Year
  Sex: Male
  Weight: 55.3 kg

DRUGS (1)
  1. MOXIFLOXACIN HCL [Suspect]
     Indication: INFECTION
     Dosage: 400MG EVERY DAY IV
     Route: 042
     Dates: start: 20080213, end: 20080217

REACTIONS (5)
  - BLOOD PRESSURE DIASTOLIC DECREASED [None]
  - HYPERSENSITIVITY [None]
  - INFUSION SITE ERYTHEMA [None]
  - PAIN [None]
  - RASH [None]
